FAERS Safety Report 6130491-X (Version None)
Quarter: 2009Q1

REPORT INFORMATION
  Report Type: 
  Country: None (occurrence: None)
  Receive Date: 20090323
  Receipt Date: 20090310
  Transmission Date: 20090719
  Serious: Yes (Hospitalization, Other)
  Sender: FDA-Public Use
  Company Number: TPA2009A00390

PATIENT
  Age: 49 Year
  Sex: Female
  Weight: 126.1 kg

DRUGS (8)
  1. ACTOPLUS MET [Suspect]
     Indication: TYPE 2 DIABETES MELLITUS
     Dosage: 15/500 MG, 1 IN 1 D, PER ORAL,
     Route: 048
     Dates: end: 20090228
  2. ZIAC [Concomitant]
  3. SYNTHROID [Concomitant]
  4. FUROSEMIDE [Concomitant]
  5. ALPRAZOLAM [Concomitant]
  6. GLUCOTROL XL [Concomitant]
  7. LANTUS [Concomitant]
  8. HUMALOG [Concomitant]

REACTIONS (9)
  - ABASIA [None]
  - BLOOD GLUCOSE INCREASED [None]
  - BLOOD IRON DECREASED [None]
  - DIZZINESS [None]
  - MYOCARDIAL STRAIN [None]
  - NASOPHARYNGITIS [None]
  - PHARYNGITIS [None]
  - PNEUMONIA [None]
  - PULMONARY THROMBOSIS [None]
